FAERS Safety Report 24427978 (Version 5)
Quarter: 2024Q4

REPORT INFORMATION
  Report Type: Report from Study
  Country: US (occurrence: US)
  Receive Date: 20241011
  Receipt Date: 20241218
  Transmission Date: 20250115
  Serious: Yes (Death, Life-Threatening, Hospitalization, Other)
  Sender: BAXTER
  Company Number: US-BAXTER-2024BAX025717

PATIENT
  Age: 78 Year
  Sex: Male
  Weight: 63.5 kg

DRUGS (15)
  1. CYCLOPHOSPHAMIDE [Suspect]
     Active Substance: CYCLOPHOSPHAMIDE
     Indication: Diffuse large B-cell lymphoma stage II
     Dosage: 1538 MG, EVERY 3 WEEKS
     Route: 042
     Dates: start: 20240918, end: 20240918
  2. DOXORUBICIN [Suspect]
     Active Substance: DOXORUBICIN
     Indication: Diffuse large B-cell lymphoma stage II
     Dosage: 102 MG, EVERY 3 WEEKS
     Route: 042
     Dates: start: 20240918, end: 20240918
  3. EPCORITAMAB [Suspect]
     Active Substance: EPCORITAMAB
     Indication: Diffuse large B-cell lymphoma stage II
     Dosage: DRUG NOT ADMINISTERED
     Route: 065
  4. VINCRISTINE [Suspect]
     Active Substance: VINCRISTINE
     Indication: Diffuse large B-cell lymphoma stage II
     Dosage: 2 MG, EVERY 3 WEEKS
     Route: 042
     Dates: start: 20240918, end: 20240918
  5. PREDNISONE [Suspect]
     Active Substance: PREDNISONE
     Indication: Diffuse large B-cell lymphoma stage II
     Dosage: 100 MG C1-6, DAY1-5, EVERY 1 DAYS
     Route: 048
     Dates: start: 20240918, end: 20240922
  6. RITUXIMAB [Suspect]
     Active Substance: RITUXIMAB
     Indication: Diffuse large B-cell lymphoma stage II
     Dosage: 769 MG, EVERY 3 WEEKS
     Route: 042
     Dates: start: 20240918, end: 20240918
  7. ALLOPURINOL [Concomitant]
     Active Substance: ALLOPURINOL
     Indication: Prophylaxis
     Dosage: 300 MG, EVERY 1 DAYS
     Route: 065
     Dates: start: 20240918
  8. BACTRIM DS [Concomitant]
     Active Substance: SULFAMETHOXAZOLE\TRIMETHOPRIM
     Indication: Infection prophylaxis
     Dosage: 800 MG-160 MG, EVERY 1 DAYS
     Route: 065
     Dates: start: 20240909
  9. GABAPENTIN [Concomitant]
     Active Substance: GABAPENTIN
     Indication: Cancer pain
     Dosage: 100 MG, AS NECESSARY
     Route: 065
     Dates: start: 20240820
  10. LEVOFLOXACIN [Concomitant]
     Active Substance: LEVOFLOXACIN
     Indication: Stent placement
     Dosage: 500 MG, EVERY 1 DAYS
     Route: 065
     Dates: start: 20240820, end: 20240830
  11. OXYCODONE [Concomitant]
     Active Substance: OXYCODONE
     Indication: Cancer pain
     Dosage: 5 MG, AS NECESSARY
     Route: 065
     Dates: start: 20240820
  12. VALACYCLOVIR [Concomitant]
     Active Substance: VALACYCLOVIR HYDROCHLORIDE
     Indication: Infection prophylaxis
     Dosage: 500 MG, EVERY 1 DAYS
     Route: 065
     Dates: start: 20240909
  13. SPIRONOLACTONE [Concomitant]
     Active Substance: SPIRONOLACTONE
     Indication: Ascites
     Dosage: 25 MG, 2/DAYS
     Route: 065
     Dates: start: 20240820
  14. SPIRONOLACTONE [Concomitant]
     Active Substance: SPIRONOLACTONE
     Indication: Peripheral swelling
  15. TAMSULOSIN [Concomitant]
     Active Substance: TAMSULOSIN
     Indication: Benign prostatic hyperplasia
     Dosage: 0.4 MG, EVERY 1 DAYS
     Route: 065
     Dates: start: 20240820

REACTIONS (4)
  - Sepsis [Fatal]
  - Sepsis [Recovered/Resolved]
  - Pneumonia [Not Recovered/Not Resolved]
  - Endocarditis [Not Recovered/Not Resolved]

NARRATIVE: CASE EVENT DATE: 20240925
